FAERS Safety Report 6195935-6 (Version None)
Quarter: 2009Q2

REPORT INFORMATION
  Report Type: 
  Country: None (occurrence: None)
  Receive Date: 20090520
  Receipt Date: 20090513
  Transmission Date: 20091009
  Serious: Yes (Other)
  Sender: FDA-Public Use
  Company Number: NL-B.I. PHARMACEUTICALS,INC./RIDGEFIELD-2009-NL-00323NL

PATIENT
  Sex: Male

DRUGS (1)
  1. MICARDIS HCT [Suspect]

REACTIONS (2)
  - DYSPHAGIA [None]
  - LIP AND/OR ORAL CAVITY CANCER [None]
